FAERS Safety Report 25939832 (Version 1)
Quarter: 2025Q4

REPORT INFORMATION
  Report Type: Spontaneous
  Country: US (occurrence: US)
  Receive Date: 20251020
  Receipt Date: 20251020
  Transmission Date: 20260117
  Serious: No
  Sender: Kenvue
  Company Number: US-KENVUE-20251005771

PATIENT
  Age: 45 Year
  Sex: Female
  Weight: 64.4 kg

DRUGS (8)
  1. IBUPROFEN [Suspect]
     Active Substance: IBUPROFEN
     Indication: Infusion site pain
     Dosage: UNK
     Route: 065
     Dates: start: 202509
  2. TYLENOL [Concomitant]
     Active Substance: ACETAMINOPHEN
     Indication: Infusion site pain
     Dosage: UNK
     Route: 065
     Dates: start: 202509
  3. REMODULIN [Concomitant]
     Active Substance: TREPROSTINIL
     Indication: Pulmonary arterial hypertension
     Dosage: CONCENTRATION 5.0 MG/ML, DELIVERED VIA REMUNITY (SELF-FILLED) PUMP
     Route: 058
     Dates: start: 20240523
  4. REMODULIN [Concomitant]
     Active Substance: TREPROSTINIL
     Dosage: 0.025 MICROGRAM/KILOGRAM, SELF-FILL CASSETTE WITH 1.9 ML. RATE OF 20 MCL PER HOUR, CONTINUING
     Route: 058
     Dates: start: 20250904
  5. LECITHIN\POLOXAMER 407 [Concomitant]
     Active Substance: LECITHIN\POLOXAMER 407
     Indication: Infusion site pain
     Dosage: UNK
     Route: 065
     Dates: start: 202509
  6. Cleo [Concomitant]
     Indication: Infusion site pain
     Dosage: UNK
     Route: 065
     Dates: start: 202509
  7. FUROSEMIDE [Concomitant]
     Active Substance: FUROSEMIDE
     Indication: Product used for unknown indication
     Dosage: UNK
     Route: 065
  8. MACITENTAN\TADALAFIL [Concomitant]
     Active Substance: MACITENTAN\TADALAFIL
     Indication: Product used for unknown indication
     Dosage: UNK
     Route: 065

REACTIONS (1)
  - Product administered to patient of inappropriate age [Unknown]

NARRATIVE: CASE EVENT DATE: 20250901
